FAERS Safety Report 7592656-X (Version None)
Quarter: 2011Q3

REPORT INFORMATION
  Report Type: 
  Country: None (occurrence: None)
  Receive Date: 20110706
  Receipt Date: 20110629
  Transmission Date: 20111222
  Serious: Yes (Other)
  Sender: FDA-Public Use
  Company Number: US-PFIZER INC-2011146050

PATIENT
  Sex: Male
  Weight: 91 kg

DRUGS (3)
  1. SOLU-MEDROL [Suspect]
     Dosage: UNK
  2. PREDNISONE [Suspect]
     Dosage: 5 MG, DAILY
  3. IMURAN [Suspect]
     Dosage: UNK

REACTIONS (1)
  - RENAL TRANSPLANT [None]
